FAERS Safety Report 8235451-0 (Version None)
Quarter: 2012Q1

REPORT INFORMATION
  Report Type: 
  Country: None (occurrence: None)
  Receive Date: 20120326
  Receipt Date: 20120321
  Transmission Date: 20120608
  Serious: Yes (Death, Hospitalization, Other)
  Sender: FDA-Public Use
  Company Number: PHHY2012GB024797

PATIENT
  Age: 48 Year
  Sex: Male

DRUGS (4)
  1. IMIPENEM/CILASTATIN [Concomitant]
  2. CIPROFLOXACIN [Concomitant]
  3. CEFTRIAXONE [Suspect]
     Indication: ESCHERICHIA INFECTION
  4. TERLIPRESSIN [Concomitant]

REACTIONS (15)
  - EROSIVE OESOPHAGITIS [None]
  - DRUG INEFFECTIVE [None]
  - GASTROOESOPHAGEAL REFLUX DISEASE [None]
  - HEPATIC ENCEPHALOPATHY [None]
  - OEDEMA PERIPHERAL [None]
  - MULTI-ORGAN FAILURE [None]
  - PATHOGEN RESISTANCE [None]
  - PLEURAL EFFUSION [None]
  - INFECTIOUS PERITONITIS [None]
  - RESPIRATORY FAILURE [None]
  - SEPTIC SHOCK [None]
  - DIVERTICULITIS [None]
  - ASCITES [None]
  - ZYGOMYCOSIS [None]
  - SOMNOLENCE [None]
